FAERS Safety Report 13276471 (Version 10)
Quarter: 2017Q3

REPORT INFORMATION
  Report Type: Report from Study
  Country: US (occurrence: US)
  Receive Date: 20170228
  Receipt Date: 20170915
  Transmission Date: 20171127
  Serious: Yes (Hospitalization, Other)
  Sender: FDA-Public Use
  Company Number: US-BAYER-2017-038433

PATIENT
  Age: 70 Year
  Sex: Female
  Weight: 78.46 kg

DRUGS (9)
  1. ADEMPAS [Suspect]
     Active Substance: RIOCIGUAT
     Indication: PULMONARY ARTERIAL HYPERTENSION
     Dosage: UNK
     Dates: start: 20160802
  2. LETAIRIS [Suspect]
     Active Substance: AMBRISENTAN
     Dosage: UNK
     Dates: end: 201703
  3. ADEMPAS [Suspect]
     Active Substance: RIOCIGUAT
     Indication: PULMONARY ARTERIAL HYPERTENSION
     Dosage: 2 MG, TID
     Route: 048
  4. ADEMPAS [Suspect]
     Active Substance: RIOCIGUAT
     Indication: PULMONARY ARTERIAL HYPERTENSION
     Dosage: 2 MG, TID
     Route: 048
  5. ADEMPAS [Suspect]
     Active Substance: RIOCIGUAT
     Indication: PULMONARY ARTERIAL HYPERTENSION
     Dosage: 2 MG, TID
     Route: 048
  6. ADEMPAS [Suspect]
     Active Substance: RIOCIGUAT
     Indication: PULMONARY ARTERIAL HYPERTENSION
     Dosage: 2 MG, TID
     Route: 048
  7. AMLODIPINE [Concomitant]
     Active Substance: AMLODIPINE BESYLATE
     Dosage: UNK
  8. ADEMPAS [Suspect]
     Active Substance: RIOCIGUAT
     Indication: PULMONARY ARTERIAL HYPERTENSION
     Dosage: 1 MG, TID
  9. TYVASO [Concomitant]
     Active Substance: TREPROSTINIL

REACTIONS (22)
  - Dyspnoea exertional [Not Recovered/Not Resolved]
  - Lacrimation increased [Unknown]
  - Insomnia [Unknown]
  - Dyspepsia [Recovering/Resolving]
  - Oesophageal disorder [Unknown]
  - Cough [Unknown]
  - Constipation [Unknown]
  - Pain [None]
  - Back pain [Unknown]
  - Nervousness [None]
  - Multiple allergies [Unknown]
  - Headache [Unknown]
  - Rehabilitation therapy [Unknown]
  - Throat tightness [Unknown]
  - Diarrhoea [Unknown]
  - Flatulence [None]
  - Dizziness [None]
  - Influenza [None]
  - Eye pruritus [Unknown]
  - Dyspnoea [Not Recovered/Not Resolved]
  - Dyspepsia [Unknown]
  - Dyspnoea [Recovering/Resolving]
